FAERS Safety Report 21067888 (Version 1)
Quarter: 2022Q3

REPORT INFORMATION
  Report Type: Spontaneous
  Country: GB (occurrence: GB)
  Receive Date: 20220712
  Receipt Date: 20220712
  Transmission Date: 20221026
  Serious: Yes (Life-Threatening, Hospitalization, Other)
  Sender: FDA-Public Use
  Company Number: GB-MHRA-MED-202206291034218870-HZYFR

PATIENT
  Age: 40 Year
  Sex: Female
  Weight: 64 kg

DRUGS (1)
  1. TOPIRAMATE [Suspect]
     Active Substance: TOPIRAMATE
     Indication: Intracranial pressure increased
     Dosage: UNK (50MG MORNING 25MG AT NIGHT, WAS MEANT TO INCREASE TO 100MG A DAY)
     Route: 065

REACTIONS (1)
  - Completed suicide [Recovering/Resolving]

NARRATIVE: CASE EVENT DATE: 20220525
